FAERS Safety Report 5151277-9 (Version None)
Quarter: 2006Q4

REPORT INFORMATION
  Report Type: 
  Country: None (occurrence: None)
  Receive Date: 20061113
  Receipt Date: 20061113
  Transmission Date: 20070319
  Serious: Yes (Life-Threatening)
  Sender: FDA-Public Use
  Company Number: None

PATIENT
  Sex: Male
  Weight: 31.7518 kg

DRUGS (2)
  1. LAMOTRIGINE [Suspect]
     Indication: PETIT MAL EPILEPSY
     Dosage: 1/2 TABLET DAILY FOR 2 WEEKS 047
     Dates: start: 20060929, end: 20061010
  2. DEPAKOTE [Concomitant]

REACTIONS (2)
  - HYPERSENSITIVITY [None]
  - STEVENS-JOHNSON SYNDROME [None]
